FAERS Safety Report 10956523 (Version 1)
Quarter: 2015Q1

REPORT INFORMATION
  Report Type: Spontaneous
  Country: FR (occurrence: FR)
  Receive Date: 20150326
  Receipt Date: 20150326
  Transmission Date: 20150721
  Serious: Yes (Hospitalization)
  Sender: FDA-Public Use
  Company Number: FR-TEVA-550543ISR

PATIENT
  Age: 14 Year
  Weight: 179 kg

DRUGS (1)
  1. ACTIQ [Suspect]
     Active Substance: FENTANYL CITRATE
     Indication: PRODUCT USED FOR UNKNOWN INDICATION
     Route: 048
     Dates: start: 201209, end: 201209

REACTIONS (5)
  - Somnolence [Recovered/Resolved]
  - Product use issue [Unknown]
  - Product use issue [Recovered/Resolved]
  - Drug abuse [Unknown]
  - Disorientation [Recovered/Resolved]

NARRATIVE: CASE EVENT DATE: 201209
